FAERS Safety Report 10441570 (Version 2)
Quarter: 2014Q3

REPORT INFORMATION
  Report Type: Spontaneous
  Country: US (occurrence: US)
  Receive Date: 20140908
  Receipt Date: 20140924
  Transmission Date: 20150326
  Serious: Yes (Other)
  Sender: FDA-Public Use
  Company Number: US-009507513-1409USA001813

PATIENT
  Sex: Male

DRUGS (1)
  1. MK-0000 (111) [Suspect]
     Active Substance: INVESTIGATIONAL PRODUCT
     Dosage: UNK

REACTIONS (1)
  - Hypoacusis [Unknown]
